FAERS Safety Report 9792401 (Version 1)
Quarter: 2014Q1

REPORT INFORMATION
  Report Type: Spontaneous
  Country: US (occurrence: US)
  Receive Date: 20140102
  Receipt Date: 20140102
  Transmission Date: 20141002
  Serious: No
  Sender: FDA-Public Use
  Company Number: US-BIOGENIDEC-2013BI123431

PATIENT
  Age: 17 Year
  Sex: Female

DRUGS (2)
  1. TECFIDERA [Suspect]
     Indication: MULTIPLE SCLEROSIS
     Route: 048
     Dates: start: 20131023, end: 20131029
  2. TECFIDERA [Suspect]
     Indication: MULTIPLE SCLEROSIS
     Route: 048
     Dates: start: 20131030

REACTIONS (4)
  - Rash [Unknown]
  - Flushing [Not Recovered/Not Resolved]
  - Gastric disorder [Recovered/Resolved]
  - Abdominal pain upper [Recovered/Resolved]
